FAERS Safety Report 7329158-1 (Version None)
Quarter: 2011Q1

REPORT INFORMATION
  Report Type: 
  Country: None (occurrence: None)
  Receive Date: 20110303
  Receipt Date: 20110224
  Transmission Date: 20110831
  Serious: Yes (Death, Hospitalization)
  Sender: FDA-Public Use
  Company Number: A0759828A

PATIENT
  Age: 57 Year
  Sex: Male
  Weight: 120.5 kg

DRUGS (6)
  1. PLAVIX [Concomitant]
  2. METOPROLOL SUCCINATE [Concomitant]
  3. ZOCOR [Concomitant]
  4. COREG [Concomitant]
  5. ZAROXOLYN [Concomitant]
  6. AVANDIA [Suspect]
     Indication: TYPE 2 DIABETES MELLITUS
     Dosage: 4MG TWICE PER DAY
     Route: 048
     Dates: start: 20000101, end: 20051212

REACTIONS (4)
  - MYOCARDIAL INFARCTION [None]
  - RENAL FAILURE ACUTE [None]
  - ACUTE RESPIRATORY FAILURE [None]
  - CHRONIC OBSTRUCTIVE PULMONARY DISEASE [None]
